FAERS Safety Report 14907934 (Version 1)
Quarter: 2018Q2

REPORT INFORMATION
  Report Type: Spontaneous
  Country: US (occurrence: US)
  Receive Date: 20180428
  Receipt Date: 20180428
  Transmission Date: 20180711
  Serious: Yes (Death, Hospitalization)
  Sender: FDA-Public Use
  Company Number: None

PATIENT
  Age: 20 Year
  Sex: Male
  Weight: 86.7 kg

DRUGS (2)
  1. ETOPOSIDE. [Suspect]
     Active Substance: ETOPOSIDE
     Dates: end: 20170326
  2. IFOSFAMIDE. [Suspect]
     Active Substance: IFOSFAMIDE
     Dates: end: 20170326

REACTIONS (7)
  - Acute kidney injury [None]
  - Bradycardia [None]
  - Acute myeloid leukaemia [None]
  - Acute respiratory distress syndrome [None]
  - Multiple organ dysfunction syndrome [None]
  - Disseminated intravascular coagulation [None]
  - Cardiac arrest [None]

NARRATIVE: CASE EVENT DATE: 20180423
